FAERS Safety Report 15731611 (Version 2)
Quarter: 2019Q1

REPORT INFORMATION
  Report Type: Spontaneous
  Country: BR (occurrence: BR)
  Receive Date: 20181217
  Receipt Date: 20190228
  Transmission Date: 20190417
  Serious: Yes (Hospitalization, Other)
  Sender: FDA-Public Use
  Company Number: BR-ELI_LILLY_AND_COMPANY-BR201812004470

PATIENT
  Sex: Male

DRUGS (11)
  1. METFORMINA [METFORMIN] [Concomitant]
     Indication: DIABETES MELLITUS
     Dosage: 850 MG, DAILY
     Route: 048
  2. ROSUVASTATINA [ROSUVASTATIN] [Concomitant]
     Indication: BLOOD CHOLESTEROL ABNORMAL
     Dosage: 4 MG, DAILY
     Route: 065
  3. ENALAPRIL [Concomitant]
     Active Substance: ENALAPRIL
     Indication: HYPERTENSION
     Dosage: UNK, BID
     Route: 065
  4. AMLODIPINE [Concomitant]
     Active Substance: AMLODIPINE BESYLATE
     Indication: HYPERTENSION
     Dosage: 10 MG, BID
     Route: 065
  5. HUMULIN N [Suspect]
     Active Substance: INSULIN HUMAN
     Indication: PRODUCT USED FOR UNKNOWN INDICATION
     Dosage: 30 DF, EACH MORNING
     Route: 065
     Dates: start: 2009
  6. ISOSORBIDE. [Concomitant]
     Active Substance: ISOSORBIDE
     Indication: CARDIAC DISORDER
     Dosage: UNK, TID
     Route: 065
     Dates: start: 2013
  7. HUMULIN N [Suspect]
     Active Substance: INSULIN HUMAN
     Dosage: 40 DF, EACH EVENING
     Route: 065
  8. ESPIRONOLACTONA [Concomitant]
     Active Substance: SPIRONOLACTONE
     Indication: HYPERTENSION
     Dosage: UNK, DAILY
     Route: 065
  9. SINVASTATINA [Concomitant]
     Active Substance: SIMVASTATIN
     Indication: BLOOD CHOLESTEROL ABNORMAL
     Dosage: UNK, UNKNOWN
     Route: 065
  10. ATENOLOL. [Concomitant]
     Active Substance: ATENOLOL
     Indication: HYPERTENSION
     Dosage: 50 MG, BID
     Route: 065
  11. HIDROCLOROTIAZIDA [Concomitant]
     Active Substance: HYDROCHLOROTHIAZIDE
     Indication: HYPERTENSION
     Dosage: UNK, DAILY
     Route: 065

REACTIONS (4)
  - Hemiplegia [Recovering/Resolving]
  - Ischaemic stroke [Unknown]
  - Hypertension [Unknown]
  - Wrong dose [Unknown]

NARRATIVE: CASE EVENT DATE: 2018
